FAERS Safety Report 9112818 (Version 1)
Quarter: 2013Q1

REPORT INFORMATION
  Report Type: Spontaneous
  Country: US (occurrence: US)
  Receive Date: 20130211
  Receipt Date: 20130211
  Transmission Date: 20140127
  Serious: Yes (Other)
  Sender: FDA-Public Use
  Company Number: US-ASTRAZENECA-2013SE07980

PATIENT
  Sex: Female

DRUGS (15)
  1. LISINOPRIL [Suspect]
     Route: 048
  2. PLENDIL [Suspect]
     Route: 048
  3. GLIPIZIDE [Concomitant]
     Dosage: BEFOR BREAKFAST AND EVENING MEAL
     Route: 048
  4. LOSARTAN [Concomitant]
     Route: 048
  5. PRAVASTATIN [Concomitant]
     Route: 048
  6. AMITRIPTYLINE HCL [Concomitant]
     Route: 048
  7. NORVASC [Concomitant]
     Route: 048
  8. BUSPIRONE HCL [Concomitant]
  9. FLUTICASONE FUROATE [Concomitant]
  10. NEURONTIN [Concomitant]
  11. LANTUS [Concomitant]
  12. NOVOLOG [Concomitant]
  13. TYLENOL EXTRA STRENGTH [Concomitant]
  14. XYZAL [Concomitant]
     Route: 048
  15. NAPROXEN [Concomitant]

REACTIONS (19)
  - Exposure during pregnancy [Unknown]
  - Complication of pregnancy [Unknown]
  - Premature labour [Unknown]
  - Abortion spontaneous [Unknown]
  - Diabetes mellitus inadequate control [Unknown]
  - Hyperlipidaemia [Unknown]
  - Hypercholesterolaemia [Unknown]
  - Hypertension [Unknown]
  - Bronchitis chronic [Unknown]
  - Pneumonia [Unknown]
  - Urinary incontinence [Unknown]
  - Back pain [Unknown]
  - Peripheral sensory neuropathy [Unknown]
  - Anxiety [Unknown]
  - Acute sinusitis [Unknown]
  - Depression [Unknown]
  - Gastrooesophageal reflux disease [Unknown]
  - Sinusitis [Unknown]
  - Drug hypersensitivity [Unknown]
